FAERS Safety Report 9266823 (Version 2)
Quarter: 2013Q2

REPORT INFORMATION
  Report Type: Spontaneous
  Country: US (occurrence: US)
  Receive Date: 20130502
  Receipt Date: 20130520
  Transmission Date: 20140414
  Serious: Yes (Other)
  Sender: FDA-Public Use
  Company Number: US-BAYER-2013-054357

PATIENT
  Age: 60 Year
  Sex: Female

DRUGS (2)
  1. AVELOX [Suspect]
     Indication: BRONCHOPNEUMONIA
     Dosage: 400 MG, QD
     Route: 048
     Dates: start: 20130402, end: 20130406
  2. AVELOX [Suspect]
     Indication: BRONCHOPNEUMONIA

REACTIONS (26)
  - Deafness [Recovering/Resolving]
  - Muscular weakness [Recovering/Resolving]
  - Coordination abnormal [Recovering/Resolving]
  - Headache [Recovering/Resolving]
  - Vision blurred [Recovering/Resolving]
  - Pain [Recovering/Resolving]
  - Dry mouth [Recovering/Resolving]
  - Palpitations [Recovering/Resolving]
  - Diarrhoea [Recovering/Resolving]
  - Rash [Recovering/Resolving]
  - Pyrexia [Recovering/Resolving]
  - Anxiety [Recovering/Resolving]
  - Nervousness [Recovering/Resolving]
  - Peripheral coldness [Recovering/Resolving]
  - Nightmare [Recovering/Resolving]
  - Heart rate increased [Recovering/Resolving]
  - Gait disturbance [Recovering/Resolving]
  - Dizziness [Recovering/Resolving]
  - Blindness [None]
  - Eye irritation [Recovering/Resolving]
  - Nausea [Recovering/Resolving]
  - Oropharyngeal pain [Recovering/Resolving]
  - Vertigo [Recovering/Resolving]
  - Myalgia [Recovering/Resolving]
  - Arthralgia [Recovering/Resolving]
  - Tendon pain [Recovering/Resolving]
